FAERS Safety Report 7202516-1 (Version None)
Quarter: 2010Q4

REPORT INFORMATION
  Report Type: 
  Country: None (occurrence: None)
  Receive Date: 20101229
  Receipt Date: 20101222
  Transmission Date: 20110411
  Serious: Yes (Hospitalization)
  Sender: FDA-Public Use
  Company Number: JP-NOVOPROD-320600

PATIENT
  Age: 35 Year
  Sex: Female

DRUGS (2)
  1. LEVEMIR [Suspect]
     Indication: SUICIDE ATTEMPT
     Dosage: 900 U, QD
     Route: 058
  2. NOVOLIN R [Suspect]
     Indication: SUICIDE ATTEMPT
     Dosage: 1200 U, QD
     Route: 058

REACTIONS (2)
  - INTENTIONAL OVERDOSE [None]
  - SUICIDE ATTEMPT [None]
